FAERS Safety Report 5319681-3 (Version None)
Quarter: 2007Q2

REPORT INFORMATION
  Report Type: 
  Country: None (occurrence: None)
  Receive Date: 20070501
  Receipt Date: 20070416
  Transmission Date: 20071010
  Serious: Yes (Other)
  Sender: FDA-Public Use
  Company Number: 2007S1002448

PATIENT
  Age: 53 Year
  Sex: Female

DRUGS (9)
  1. FENTANYL TRANSDERMAL SYSTEM [Suspect]
     Indication: MUSCLE SPASMS
     Dosage: 25 UG/HR; EVERY 3 DAYS; TRANSDERMAL
     Route: 062
     Dates: start: 20070314, end: 20070315
  2. FENTANYL TRANSDERMAL SYSTEM [Suspect]
     Indication: NEUROPATHY
     Dosage: 25 UG/HR; EVERY 3 DAYS; TRANSDERMAL
     Route: 062
     Dates: start: 20070314, end: 20070315
  3. FENTANYL TRANSDERMAL SYSTEM [Suspect]
     Indication: PAIN
     Dosage: 25 UG/HR; EVERY 3 DAYS; TRANSDERMAL
     Route: 062
     Dates: start: 20070314, end: 20070315
  4. CYCLOBENZAPRINE HCL [Concomitant]
  5. MONTELUKAST SODIUM [Concomitant]
  6. FLUTICASONE PROPIONATE [Concomitant]
  7. DULOXETINE HYDROCHLORIDE [Concomitant]
  8. ESTROGENS CONJUGATED [Concomitant]
  9. OMEPRAZOLE [Concomitant]

REACTIONS (4)
  - DRUG HYPERSENSITIVITY [None]
  - MIGRAINE [None]
  - NAUSEA [None]
  - VOMITING [None]
